FAERS Safety Report 12917147 (Version 1)
Quarter: 2016Q4

REPORT INFORMATION
  Report Type: Spontaneous
  Country: FI (occurrence: FI)
  Receive Date: 20161107
  Receipt Date: 20161107
  Transmission Date: 20170207
  Serious: Yes (Disabling)
  Sender: FDA-Public Use
  Company Number: FI-MEDA-2016100107

PATIENT
  Age: 52 Year
  Sex: Male

DRUGS (5)
  1. ALFUZOSIN 10 MG [Concomitant]
     Active Substance: ALFUZOSIN
     Indication: PROSTATOMEGALY
     Dates: start: 201306
  2. DYMISTA [Suspect]
     Active Substance: AZELASTINE HYDROCHLORIDE\FLUTICASONE PROPIONATE
     Indication: SINUSITIS
     Route: 045
     Dates: start: 20160929, end: 20161006
  3. MELOXICAM 15 MG [Concomitant]
     Indication: OSTEOARTHRITIS
  4. PANADOL FORTE 1G [Concomitant]
     Indication: OSTEOARTHRITIS
     Dosage: 1-3 TABLETS A DAY
     Dates: start: 2012
  5. CARTEXAN 400 MG [Concomitant]
     Indication: OSTEOARTHRITIS
     Dates: start: 20161017, end: 20161017

REACTIONS (6)
  - Aphasia [Not Recovered/Not Resolved]
  - Intentional product misuse [Not Recovered/Not Resolved]
  - Pharyngeal hypoaesthesia [Not Recovered/Not Resolved]
  - Dysphagia [Not Recovered/Not Resolved]
  - Hypoaesthesia oral [Not Recovered/Not Resolved]
  - Swelling [Not Recovered/Not Resolved]

NARRATIVE: CASE EVENT DATE: 20160929
